FAERS Safety Report 4868221-1 (Version None)
Quarter: 2005Q4

REPORT INFORMATION
  Report Type: 
  Country: None (occurrence: None)
  Receive Date: 20051229
  Receipt Date: 20051219
  Transmission Date: 20060501
  Serious: Yes (Other)
  Sender: FDA-Public Use
  Company Number: US-GILEAD-2005-0009040

PATIENT
  Age: 48 Year
  Sex: Male
  Weight: 68.1 kg

DRUGS (11)
  1. BLINDED EMTRICITABINE/TENOFOVIR DF OR PLACEBO [Suspect]
     Indication: HIV INFECTION
     Route: 048
     Dates: start: 20051115
  2. BLINDED ABACAVIR/LAMIVUDINE OR PLACEBO [Suspect]
     Indication: HIV INFECTION
     Route: 048
     Dates: start: 20051115
  3. BLINDED ABACAVIR VS. LAMIVUDINE [Suspect]
     Indication: HIV INFECTION
     Route: 048
     Dates: start: 20051115
  4. EFAVIRENZ [Suspect]
     Indication: HIV INFECTION
     Route: 048
     Dates: start: 20051115
  5. BACTRIM DS [Concomitant]
  6. ZITHROMAX [Concomitant]
  7. DIFLUCAN [Concomitant]
  8. DEPAKOTE [Concomitant]
  9. ZYPREXA [Concomitant]
  10. PROZAC [Concomitant]
  11. METHADONE [Concomitant]

REACTIONS (1)
  - CONVULSION [None]
